FAERS Safety Report 10560551 (Version 1)
Quarter: 2014Q4

REPORT INFORMATION
  Report Type: Spontaneous
  Country: US (occurrence: US)
  Receive Date: 20141103
  Receipt Date: 20141103
  Transmission Date: 20150529
  Serious: Yes (Hospitalization)
  Sender: FDA-Public Use
  Company Number: US-SA-2014SA094153

PATIENT
  Age: 69 Year
  Sex: Female

DRUGS (3)
  1. LUMIZYME [Suspect]
     Active Substance: ALGLUCOSIDASE ALFA
     Indication: GLYCOGEN STORAGE DISEASE TYPE II
     Dosage: LOT NUMBERS C3232C01;C3238C01;;C3246C01 RECEIVED ON 18-JUN-2014
     Route: 042
     Dates: start: 20100901, end: 20140618
  2. LUMIZYME [Suspect]
     Active Substance: ALGLUCOSIDASE ALFA
     Indication: GLYCOGEN STORAGE DISEASE TYPE II
     Dosage: LOT NUMBERS C3232C01;C3238C01;;C3246C01 RECEIVED ON 18-JUN-2014
     Route: 042
     Dates: start: 20100901, end: 20140618
  3. LUMIZYME [Suspect]
     Active Substance: ALGLUCOSIDASE ALFA
     Indication: GLYCOGEN STORAGE DISEASE TYPE II
     Dosage: LOT NUMBERS C3232C01;C3238C01;;C3246C01 RECEIVED ON 18-JUN-2014
     Route: 042
     Dates: start: 20100901, end: 20140618

REACTIONS (2)
  - Malaise [Unknown]
  - Dyspnoea [Unknown]

NARRATIVE: CASE EVENT DATE: 201407
